FAERS Safety Report 7496617-0 (Version None)
Quarter: 2011Q2

REPORT INFORMATION
  Report Type: 
  Country: None (occurrence: None)
  Receive Date: 20110523
  Receipt Date: 20110518
  Transmission Date: 20111010
  Serious: Yes (Life-Threatening)
  Sender: FDA-Public Use
  Company Number: FR-ASTRAZENECA-2011SE29814

PATIENT
  Age: 49 Year
  Sex: Male

DRUGS (4)
  1. GLUCOPHAGE [Concomitant]
     Indication: TYPE 2 DIABETES MELLITUS
  2. CELOCURINE [Suspect]
     Route: 042
     Dates: start: 20110326, end: 20110326
  3. DIPRIVAN [Suspect]
     Route: 042
     Dates: start: 20110326, end: 20110326
  4. SUFENTA PRESERVATIVE FREE [Suspect]
     Route: 042
     Dates: start: 20110326, end: 20110326

REACTIONS (1)
  - ANAPHYLACTIC SHOCK [None]
